FAERS Safety Report 19021408 (Version 1)
Quarter: 2021Q1

REPORT INFORMATION
  Report Type: Spontaneous
  Country: US (occurrence: US)
  Receive Date: 20210317
  Receipt Date: 20210317
  Transmission Date: 20210420
  Serious: Yes (Death, Hospitalization, Other)
  Sender: FDA-Public Use
  Company Number: US-AMGEN-USASP2021040399

PATIENT

DRUGS (2)
  1. MOZOBIL [Concomitant]
     Active Substance: PLERIXAFOR
     Indication: HAEMATOPOIETIC STEM CELL MOBILISATION
     Dosage: 0.24 MILLIGRAM/KILOGRAM/DAY
     Route: 058
  2. FILGRASTIM [Suspect]
     Active Substance: FILGRASTIM
     Indication: HAEMATOPOIETIC STEM CELL MOBILISATION
     Dosage: 10 MICROGRAM/KILOGRAM/DAY
     Route: 058

REACTIONS (32)
  - Death [Fatal]
  - Multiple organ dysfunction syndrome [Fatal]
  - Non-Hodgkin^s lymphoma [Unknown]
  - Bone pain [Unknown]
  - Diarrhoea [Unknown]
  - Arthralgia [Unknown]
  - Small intestinal obstruction [Unknown]
  - Headache [Unknown]
  - Vomiting [Unknown]
  - Product administration error [Unknown]
  - Septic shock [Fatal]
  - Disease progression [Fatal]
  - Hypokalaemia [Unknown]
  - Paraesthesia oral [Unknown]
  - Paraesthesia [Unknown]
  - Infection [Fatal]
  - Disease recurrence [Fatal]
  - Pain [Unknown]
  - Respiratory failure [Fatal]
  - Injection site pruritus [Unknown]
  - Nausea [Unknown]
  - Back pain [Unknown]
  - Clostridial sepsis [Unknown]
  - Atrial fibrillation [Unknown]
  - Hypotension [Unknown]
  - Fatigue [Unknown]
  - Mucosal inflammation [Unknown]
  - Injection site erythema [Unknown]
  - Product dose omission issue [Unknown]
  - Hypomagnesaemia [Unknown]
  - Muscle spasms [Unknown]
  - Treatment failure [Unknown]
